FAERS Safety Report 19912887 (Version 1)
Quarter: 2021Q4

REPORT INFORMATION
  Report Type: Spontaneous
  Country: US (occurrence: US)
  Receive Date: 20211004
  Receipt Date: 20211004
  Transmission Date: 20220303
  Serious: Yes (Life-Threatening, Hospitalization, Other)
  Sender: FDA-Public Use
  Company Number: US-BOEHRINGERINGELHEIM-2021-BI-130399

PATIENT
  Age: 77 Year
  Sex: Male

DRUGS (2)
  1. COMBIVENT [Suspect]
     Active Substance: ALBUTEROL SULFATE\IPRATROPIUM BROMIDE
     Indication: Chronic obstructive pulmonary disease
     Dosage: 1 PUFF QID
     Route: 065
     Dates: start: 2021
  2. COVID-19 VACCINE [Concomitant]
     Indication: Product used for unknown indication
     Dosage: 1 INJECTION
     Route: 065
     Dates: start: 202103

REACTIONS (6)
  - Pulmonary embolism [Recovered/Resolved]
  - Pneumonia [Recovered/Resolved]
  - COVID-19 [Recovered/Resolved]
  - Pneumonia [Recovered/Resolved]
  - Weight decreased [Unknown]
  - Fall [Unknown]

NARRATIVE: CASE EVENT DATE: 20210301
